FAERS Safety Report 7241064-X (Version None)
Quarter: 2011Q1

REPORT INFORMATION
  Report Type: 
  Country: None (occurrence: None)
  Receive Date: 20110124
  Receipt Date: 20110118
  Transmission Date: 20110831
  Serious: Yes (Other)
  Sender: FDA-Public Use
  Company Number: US-PFIZER INC-2011011938

PATIENT
  Sex: Female

DRUGS (2)
  1. LYRICA [Suspect]
     Indication: PAIN IN EXTREMITY
  2. LYRICA [Suspect]
     Indication: ARTHRALGIA
     Dosage: 225 MG, 2X/DAY
     Route: 048

REACTIONS (1)
  - ASTHMA [None]
